FAERS Safety Report 24235392 (Version 1)
Quarter: 2024Q3

REPORT INFORMATION
  Report Type: Spontaneous
  Country: FR (occurrence: FR)
  Receive Date: 20240821
  Receipt Date: 20240821
  Transmission Date: 20241017
  Serious: Yes (Hospitalization)
  Sender: JOHNSON AND JOHNSON
  Company Number: None

PATIENT
  Age: 5 Year
  Sex: Male

DRUGS (1)
  1. RISPERDAL [Suspect]
     Active Substance: RISPERIDONE
     Indication: Autism spectrum disorder
     Route: 048
     Dates: start: 20240612, end: 20240613

REACTIONS (4)
  - Tremor [Unknown]
  - Somnolence [Unknown]
  - Gait disturbance [Unknown]
  - Wrong dose [Unknown]

NARRATIVE: CASE EVENT DATE: 20240613
